FAERS Safety Report 7184040-8 (Version None)
Quarter: 2010Q4

REPORT INFORMATION
  Report Type: 
  Country: None (occurrence: None)
  Receive Date: 20101222
  Receipt Date: 20101209
  Transmission Date: 20110411
  Serious: Yes (Other)
  Sender: FDA-Public Use
  Company Number: PHHY2008JP10879

PATIENT
  Age: 41 Year
  Sex: Female

DRUGS (4)
  1. VALSARTAN [Suspect]
     Indication: HYPERTENSION
     Dosage: 80 MG DAILY
     Route: 048
     Dates: start: 20071009, end: 20071201
  2. VALSARTAN [Suspect]
     Dosage: 120 MG DAILY
     Route: 048
     Dates: start: 20071202
  3. CAPTOPRIL [Concomitant]
     Dosage: UNK
     Route: 048
     Dates: start: 20080902
  4. LONGES [Concomitant]
     Dosage: UNK
     Route: 048
     Dates: start: 20080906

REACTIONS (3)
  - ASTHMA [None]
  - DRUG EXPOSURE DURING PREGNANCY [None]
  - NUTRITIONAL CONDITION ABNORMAL [None]
